FAERS Safety Report 8451885-3 (Version None)
Quarter: 2012Q2

REPORT INFORMATION
  Report Type: 
  Country: None (occurrence: None)
  Receive Date: 20120620
  Receipt Date: 20120406
  Transmission Date: 20120825
  Serious: No
  Sender: FDA-Public Use
  Company Number: US-VERTEX PHARMACEUTICALS INC.-AE-2012-004184

PATIENT
  Sex: Female
  Weight: 59.02 kg

DRUGS (5)
  1. INCIVEK [Suspect]
     Indication: HEPATITIS C
     Route: 048
     Dates: start: 20120314
  2. PEGASYS [Concomitant]
     Indication: HEPATITIS C
     Route: 058
     Dates: start: 20120314
  3. RIBAVIRIN [Concomitant]
     Indication: HEPATITIS C
     Route: 048
     Dates: start: 20120314
  4. TORADOL [Concomitant]
     Indication: MIGRAINE
     Route: 048
  5. XANAX [Concomitant]
     Route: 048

REACTIONS (5)
  - RASH [None]
  - ANORECTAL DISCOMFORT [None]
  - INFLUENZA LIKE ILLNESS [None]
  - CONFUSIONAL STATE [None]
  - ANAL PRURITUS [None]
